FAERS Safety Report 10136995 (Version 2)
Quarter: 2014Q2

REPORT INFORMATION
  Report Type: Spontaneous
  Country: JP (occurrence: None)
  Receive Date: 20140425
  Receipt Date: 20140501
  Transmission Date: 20141212
  Serious: Yes (Hospitalization)
  Sender: FDA-Public Use
  Company Number: VAL_03085_2014

PATIENT
  Age: 80 Year
  Sex: Female

DRUGS (1)
  1. ROCALTROL [Suspect]
     Indication: PRODUCT USED FOR UNKNOWN INDICATION
     Dosage: (DF  ORAL)

REACTIONS (8)
  - Vitamin D increased [None]
  - Hypokalaemia [None]
  - Hypercalcaemia [None]
  - Hypophosphataemia [None]
  - Hypervitaminosis [None]
  - Asthenia [None]
  - Cognitive disorder [None]
  - Blood parathyroid hormone increased [None]
